FAERS Safety Report 8799365 (Version 1)
Quarter: 2012Q4

REPORT INFORMATION
  Report Type: Report from Study
  Country: DE (occurrence: DE)
  Receive Date: 20120919
  Receipt Date: 20120919
  Transmission Date: 20130627
  Serious: Yes (Other)
  Sender: FDA-Public Use
  Company Number: DE-ASTELLAS-2012EU006600

PATIENT
  Age: 70 Year
  Sex: Female
  Weight: 71 kg

DRUGS (4)
  1. MICAFUNGIN INJECTION [Suspect]
     Indication: PROPHYLAXIS
     Dosage: 50 mg, Unknown/D
     Route: 065
     Dates: start: 20111214, end: 20111219
  2. MELPHALAN [Concomitant]
     Dosage: UNK
     Route: 065
     Dates: start: 20111216, end: 20111216
  3. FLUDARABINE [Concomitant]
     Dosage: UNK
     Route: 065
     Dates: start: 20111211, end: 20111215
  4. BCNU [Concomitant]
     Dosage: UNK
     Route: 065
     Dates: start: 20111213, end: 20111214

REACTIONS (2)
  - Drug ineffective [Unknown]
  - Pneumonia fungal [Recovered/Resolved]
